FAERS Safety Report 25839021 (Version 2)
Quarter: 2025Q3

REPORT INFORMATION
  Report Type: Report from Study
  Country: US (occurrence: US)
  Receive Date: 20250924
  Receipt Date: 20250929
  Transmission Date: 20251021
  Serious: Yes (Other)
  Sender: JOHNSON AND JOHNSON
  Company Number: US-JNJFOC-20250923871

PATIENT

DRUGS (2)
  1. REMICADE [Suspect]
     Active Substance: INFLIXIMAB
     Indication: Colitis ulcerative
     Route: 041
  2. HUMIRA [Suspect]
     Active Substance: ADALIMUMAB
     Indication: Product used for unknown indication

REACTIONS (8)
  - Neoplasm malignant [Unknown]
  - Thrombosis [Unknown]
  - Diarrhoea [Unknown]
  - Stomatitis [Unknown]
  - Gingival swelling [Unknown]
  - Swollen tongue [Unknown]
  - Drug specific antibody present [Unknown]
  - Drug ineffective [Unknown]
